FAERS Safety Report 7961108-7 (Version None)
Quarter: 2011Q4

REPORT INFORMATION
  Report Type: 
  Country: None (occurrence: None)
  Receive Date: 20111201
  Receipt Date: 20111201
  Transmission Date: 20120403
  Serious: Yes (Hospitalization)
  Sender: FDA-Public Use
  Company Number: None

PATIENT
  Age: 62 Year
  Sex: Female
  Weight: 62 kg

DRUGS (6)
  1. LESTAURTINIB [Suspect]
     Indication: MYELOFIBROSIS
     Dosage: 140 MG PO BID
     Route: 048
     Dates: start: 20100519, end: 20110704
  2. OMEPRAZOLE [Concomitant]
  3. ZOFRAN [Concomitant]
  4. ALDACTONE [Concomitant]
  5. IMODIUM [Concomitant]
  6. ZINC [Concomitant]

REACTIONS (5)
  - PLATELET COUNT DECREASED [None]
  - THROMBOCYTOPENIA [None]
  - HAEMOGLOBIN DECREASED [None]
  - FALL [None]
  - WHITE BLOOD CELL COUNT INCREASED [None]
